FAERS Safety Report 17796470 (Version 1)
Quarter: 2020Q2

REPORT INFORMATION
  Report Type: Spontaneous
  Country: US (occurrence: US)
  Receive Date: 20200518
  Receipt Date: 20200518
  Transmission Date: 20200714
  Serious: No
  Sender: FDA-Public Use
  Company Number: US-CELLTRION INC.-2020US021972

PATIENT

DRUGS (3)
  1. TRUXIMA [Suspect]
     Active Substance: RITUXIMAB-ABBS
     Indication: CHRONIC LYMPHOCYTIC LEUKAEMIA
     Dosage: 375 MG/M2 (TOTAL: 700 MG) EVERY 28 DAYS (CYCLE 1)
  2. TRUXIMA [Suspect]
     Active Substance: RITUXIMAB-ABBS
     Dosage: 375 MG/M2 (TOTAL: 700 MG) EVERY 28 DAYS (CYCLE 3)
  3. TRUXIMA [Suspect]
     Active Substance: RITUXIMAB-ABBS
     Dosage: 375 MG/M2 (TOTAL: 700 MG) EVERY 28 DAYS (CYCLE 2)

REACTIONS (4)
  - Dyspnoea [Unknown]
  - Flushing [Unknown]
  - Product dose omission [Unknown]
  - White blood cell count increased [Unknown]
